FAERS Safety Report 8154232-X (Version None)
Quarter: 2012Q1

REPORT INFORMATION
  Report Type: 
  Country: None (occurrence: None)
  Receive Date: 20120103
  Receipt Date: 20111028
  Transmission Date: 20120608
  Serious: No
  Sender: FDA-Public Use
  Company Number: AE-2011-002816

PATIENT
  Age: 56 Year
  Sex: Female
  Weight: 72.5755 kg

DRUGS (3)
  1. RIBAVIRIN [Concomitant]
  2. PEGINTRON (PEGINTERFERON ALFA-2A) [Concomitant]
  3. INCIVEK [Suspect]
     Dosage: (2 TABS),ORAL
     Route: 048
     Dates: start: 20110901

REACTIONS (5)
  - PAIN IN EXTREMITY [None]
  - INAPPROPRIATE SCHEDULE OF DRUG ADMINISTRATION [None]
  - DIARRHOEA [None]
  - NAUSEA [None]
  - PAIN [None]
